FAERS Safety Report 22051224 (Version 1)
Quarter: 2023Q1

REPORT INFORMATION
  Report Type: Report from Study
  Country: CA (occurrence: CA)
  Receive Date: 20230301
  Receipt Date: 20230301
  Transmission Date: 20230418
  Serious: Yes (Hospitalization)
  Sender: FDA-Public Use
  Company Number: CA-HLS-202300302

PATIENT
  Age: 55 Year
  Sex: Male
  Weight: 49 kg

DRUGS (3)
  1. CLOZARIL [Suspect]
     Active Substance: CLOZAPINE
     Indication: Product used for unknown indication
     Route: 048
     Dates: start: 20080110
  2. CLOZARIL [Suspect]
     Active Substance: CLOZAPINE
     Indication: Product used for unknown indication
     Dosage: RESTARTED ON 06-FEB-2023
     Route: 048
  3. CLOZARIL [Suspect]
     Active Substance: CLOZAPINE
     Indication: Product used for unknown indication
     Dosage: TITRATED UP TO 300 MG AT BEDTIME
     Route: 065

REACTIONS (3)
  - Therapy interrupted [Unknown]
  - Tobacco abuse [Unknown]
  - Paranoia [Unknown]

NARRATIVE: CASE EVENT DATE: 20230101
